FAERS Safety Report 4456780-2 (Version None)
Quarter: 2004Q3

REPORT INFORMATION
  Report Type: 
  Country: None (occurrence: None)
  Receive Date: 20040923
  Receipt Date: 20040719
  Transmission Date: 20050211
  Serious: Yes (Death)
  Sender: FDA-Public Use
  Company Number: PHEH2004US07743

PATIENT
  Age: 38 Year
  Sex: Male
  Weight: 104 kg

DRUGS (3)
  1. CLOZARIL [Suspect]
     Dosage: 700 MG, QD
     Route: 048
     Dates: start: 20030917
  2. KLONOPIN [Concomitant]
  3. ALCOHOL [Suspect]

REACTIONS (3)
  - CARDIAC DISORDER [None]
  - OVERDOSE [None]
  - OVERWEIGHT [None]
